FAERS Safety Report 15839204 (Version 1)
Quarter: 2019Q1

REPORT INFORMATION
  Report Type: Spontaneous
  Country: US (occurrence: US)
  Receive Date: 20190117
  Receipt Date: 20190117
  Transmission Date: 20190417
  Serious: Yes (Death, Life-Threatening, Hospitalization)
  Sender: FDA-Public Use
  Company Number: US-TEVA-2019-US-999615

PATIENT
  Sex: Female

DRUGS (4)
  1. AMIODARONE [Suspect]
     Active Substance: AMIODARONE
     Indication: ATRIAL FIBRILLATION
     Dates: start: 2011
  2. AMIODARONE [Suspect]
     Active Substance: AMIODARONE
     Indication: ATRIAL FIBRILLATION
     Dates: start: 2011
  3. CORDARONE [Suspect]
     Active Substance: AMIODARONE HYDROCHLORIDE
     Indication: ATRIAL FIBRILLATION
     Route: 065
  4. PACERONE [Suspect]
     Active Substance: AMIODARONE HYDROCHLORIDE
     Indication: ATRIAL FIBRILLATION
     Route: 065

REACTIONS (14)
  - Fatigue [Unknown]
  - Dyspnoea exertional [Unknown]
  - Product use in unapproved indication [Unknown]
  - Pulmonary toxicity [Fatal]
  - Dyspnoea [Unknown]
  - Adverse drug reaction [Unknown]
  - Gait disturbance [Unknown]
  - Wheezing [Unknown]
  - Cough [Unknown]
  - General physical health deterioration [Unknown]
  - Product prescribing error [Unknown]
  - Asthenia [Unknown]
  - Respiratory failure [Fatal]
  - Thyroid function test abnormal [Unknown]

NARRATIVE: CASE EVENT DATE: 201609
